FAERS Safety Report 16624604 (Version 1)
Quarter: 2019Q3

REPORT INFORMATION
  Report Type: Spontaneous
  Country: US (occurrence: US)
  Receive Date: 20190723
  Receipt Date: 20190723
  Transmission Date: 20191004
  Serious: No
  Sender: FDA-Public Use
  Company Number: None

PATIENT
  Sex: Male

DRUGS (1)
  1. CIALIS [Suspect]
     Active Substance: TADALAFIL

REACTIONS (6)
  - Deafness [None]
  - Middle ear effusion [None]
  - Fall [None]
  - Head injury [None]
  - Middle insomnia [None]
  - Ear pain [None]

NARRATIVE: CASE EVENT DATE: 20190707
